FAERS Safety Report 9728028 (Version 1)
Quarter: 2013Q4

REPORT INFORMATION
  Report Type: Spontaneous
  Country: MX (occurrence: MX)
  Receive Date: 20131204
  Receipt Date: 20131204
  Transmission Date: 20140711
  Serious: Yes (Other)
  Sender: FDA-Public Use
  Company Number: MX-AMGEN-MEXSP2013085145

PATIENT
  Age: 52 Year
  Sex: Male

DRUGS (3)
  1. NEUPOGEN [Suspect]
     Indication: NEUTROPENIA
     Dosage: 300 MUG, DAY 3,4,5
     Route: 065
  2. CISPLATIN [Suspect]
     Indication: LUNG NEOPLASM MALIGNANT
     Dosage: 75 MG, Q3WK
     Route: 065
  3. PEMETREXED /01493902/ [Suspect]
     Indication: LUNG NEOPLASM MALIGNANT
     Dosage: 50 MG, Q3WK
     Route: 065

REACTIONS (3)
  - Neutropenia [Unknown]
  - Febrile neutropenia [Unknown]
  - Disease progression [Unknown]
